FAERS Safety Report 7914917-4 (Version None)
Quarter: 2011Q4

REPORT INFORMATION
  Report Type: 
  Country: None (occurrence: None)
  Receive Date: 20111115
  Receipt Date: 20111114
  Transmission Date: 20120403
  Serious: Yes (Other)
  Sender: FDA-Public Use
  Company Number: US-PFIZER INC-2011278683

PATIENT
  Sex: Female
  Weight: 68.027 kg

DRUGS (1)
  1. LIPITOR [Suspect]
     Indication: BLOOD CHOLESTEROL INCREASED
     Dosage: UNK, DAILY
     Dates: start: 20000101, end: 20030101

REACTIONS (3)
  - MUSCLE SPASMS [None]
  - PAIN [None]
  - DEPRESSED MOOD [None]
